FAERS Safety Report 11079175 (Version 1)
Quarter: 2015Q2

REPORT INFORMATION
  Report Type: Spontaneous
  Country: JP (occurrence: JP)
  Receive Date: 20150430
  Receipt Date: 20150430
  Transmission Date: 20150821
  Serious: Yes (Hospitalization)
  Sender: FDA-Public Use
  Company Number: JP-PFIZER INC-2015043894

PATIENT
  Age: 21 Year
  Sex: Male
  Weight: 68 kg

DRUGS (7)
  1. GABAPEN [Suspect]
     Active Substance: GABAPENTIN
     Dosage: 800 MG, DAILY
     Route: 048
  2. POTASSIUM BROMIDE [Suspect]
     Active Substance: POTASSIUM BROMIDE
     Dosage: 4 G, DAILY
     Route: 048
  3. KEPPRA [Suspect]
     Active Substance: LEVETIRACETAM
     Dosage: 1000 MG, DAILY
     Route: 048
  4. SEPAZON [Suspect]
     Active Substance: CLOXAZOLAM
     Dosage: 4 MG, DAILY
     Route: 048
  5. TOPINA [Suspect]
     Active Substance: TOPIRAMATE
     Dosage: 200 MG, DAILY
     Route: 048
  6. LAMICTAL [Suspect]
     Active Substance: LAMOTRIGINE
     Dosage: 150 MG, DAILY
     Route: 048
  7. TEGRETOL CR [Suspect]
     Active Substance: CARBAMAZEPINE
     Dosage: 400 MG, DAILY
     Route: 048

REACTIONS (2)
  - Blood glucose false positive [Unknown]
  - Hypoglycaemia [Unknown]
